FAERS Safety Report 9965738 (Version 1)
Quarter: 2014Q1

REPORT INFORMATION
  Report Type: Report from Study
  Country: US (occurrence: US)
  Receive Date: 20140305
  Receipt Date: 20140305
  Transmission Date: 20141002
  Serious: No
  Sender: FDA-Public Use
  Company Number: US-ABBVIE-13P-163-1123338-00

PATIENT
  Sex: Female

DRUGS (2)
  1. HUMIRA [Suspect]
     Indication: RHEUMATOID ARTHRITIS
     Route: 058
     Dates: start: 20130422
  2. HUMIRA [Suspect]
     Route: 058
     Dates: start: 2013

REACTIONS (3)
  - Thermal burn [Recovered/Resolved]
  - Ear infection [Recovered/Resolved]
  - Injection site haemorrhage [Recovered/Resolved]
